FAERS Safety Report 16453019 (Version 5)
Quarter: 2019Q3

REPORT INFORMATION
  Report Type: Spontaneous
  Country: US (occurrence: US)
  Receive Date: 20190619
  Receipt Date: 20190809
  Transmission Date: 20191004
  Serious: No
  Sender: FDA-Public Use
  Company Number: US-SA-2019SA161103

PATIENT
  Age: 61 Year
  Sex: Female
  Weight: 60.3 kg

DRUGS (9)
  1. ENSTILAR [Concomitant]
     Active Substance: BETAMETHASONE DIPROPIONATE\CALCIPOTRIENE HYDRATE
     Dosage: UNK, QD
     Route: 061
  2. SYNALAR [Concomitant]
     Active Substance: FLUOCINOLONE ACETONIDE
     Dosage: 2 DF, BID
     Route: 061
  3. METHOTREXATE SODIUM. [Concomitant]
     Active Substance: METHOTREXATE SODIUM
     Dosage: 7 DF, QW
  4. DIPROLENE AF [Concomitant]
     Active Substance: BETAMETHASONE DIPROPIONATE
     Route: 061
  5. DUPIXENT [Suspect]
     Active Substance: DUPILUMAB
     Indication: DERMATITIS ATOPIC
     Dosage: 300 MG, QOW
     Route: 058
     Dates: start: 20180530
  6. DUPIXENT [Suspect]
     Active Substance: DUPILUMAB
     Indication: NEURODERMATITIS
     Dosage: 600 MG, 1X
     Route: 058
  7. LEVETIRAM [Concomitant]
     Dosage: 1000 MG, BID
     Route: 048
  8. DUPIXENT [Suspect]
     Active Substance: DUPILUMAB
     Dosage: 300 MG, QOW
     Route: 058
     Dates: start: 20190601
  9. FOLVITE [FOLIC ACID] [Concomitant]
     Dosage: 1 DF, QD EXCEPT METHOTREXATE DAY
     Route: 048

REACTIONS (11)
  - Exfoliative rash [Unknown]
  - Eye swelling [Unknown]
  - Erythema [Unknown]
  - Ocular hyperaemia [Unknown]
  - Expired product administered [Unknown]
  - Skin exfoliation [Unknown]
  - Abdominal pain upper [Unknown]
  - Rash pruritic [Recovering/Resolving]
  - Pruritus [Unknown]
  - Injection site erythema [Unknown]
  - Urticaria [Unknown]

NARRATIVE: CASE EVENT DATE: 201906
